FAERS Safety Report 9516538 (Version 1)
Quarter: 2013Q1

REPORT INFORMATION
  Report Type: Spontaneous
  Country: US (occurrence: None)
  Receive Date: 20130305
  Receipt Date: 20130305
  Transmission Date: 20140127
  Serious: Yes (Other)
  Sender: FDA-Public Use
  Company Number: 163-21880-12080611

PATIENT
  Age: 83 Year
  Sex: Male

DRUGS (4)
  1. REVLIMID [Suspect]
     Indication: MYELODYSPLASTIC SYNDROME
     Dosage: 5 MG, 28 IN 28 D, PO
     Route: 048
     Dates: start: 20120710
  2. FERROUS SULFATE (FERROUS SULFATE) [Concomitant]
  3. WARFARIN SODIUM (WARFARIN SODIUM) [Concomitant]
  4. AZITHROMYCIN (AZITHROMYCIN) [Concomitant]

REACTIONS (5)
  - Hypotension [None]
  - Asthenia [None]
  - Platelet count decreased [None]
  - Constipation [None]
  - Gingival infection [None]
